FAERS Safety Report 6121855-9 (Version None)
Quarter: 2009Q1

REPORT INFORMATION
  Report Type: 
  Country: None (occurrence: None)
  Receive Date: 20090317
  Receipt Date: 20090305
  Transmission Date: 20090719
  Serious: Yes (Hospitalization)
  Sender: FDA-Public Use
  Company Number: AU-PFIZER INC-2009182313

PATIENT

DRUGS (1)
  1. CHAMPIX [Suspect]
     Indication: TOBACCO USER
     Dosage: UNK
     Route: 048
     Dates: start: 20080909, end: 20081019

REACTIONS (4)
  - ANGER [None]
  - DEPRESSION [None]
  - SUICIDAL IDEATION [None]
  - THEFT [None]
